FAERS Safety Report 21005659 (Version 1)
Quarter: 2022Q2

REPORT INFORMATION
  Report Type: Spontaneous
  Country: US (occurrence: US)
  Receive Date: 20220624
  Receipt Date: 20220624
  Transmission Date: 20220720
  Serious: Yes (Hospitalization, Other)
  Sender: FDA-Public Use
  Company Number: US-ELI_LILLY_AND_COMPANY-US202206005733

PATIENT
  Age: 67 Year
  Sex: Male
  Weight: 86.168 kg

DRUGS (5)
  1. BEBTELOVIMAB [Suspect]
     Active Substance: BEBTELOVIMAB
     Indication: Renal disorder
     Dosage: 175 MG, SINGLE
     Route: 042
  2. BEBTELOVIMAB [Suspect]
     Active Substance: BEBTELOVIMAB
     Indication: Diabetes mellitus
  3. BEBTELOVIMAB [Suspect]
     Active Substance: BEBTELOVIMAB
     Indication: Obesity
  4. BEBTELOVIMAB [Suspect]
     Active Substance: BEBTELOVIMAB
     Indication: Cardiovascular disorder
  5. BEBTELOVIMAB [Suspect]
     Active Substance: BEBTELOVIMAB
     Indication: COVID-19

REACTIONS (7)
  - Nausea [Unknown]
  - Vomiting [Unknown]
  - Dizziness [Unknown]
  - Hypotension [Unknown]
  - Bradycardia [Unknown]
  - Hyperhidrosis [Unknown]
  - Pallor [Unknown]

NARRATIVE: CASE EVENT DATE: 20220612
